FAERS Safety Report 5723310-4 (Version None)
Quarter: 2008Q2

REPORT INFORMATION
  Report Type: 
  Country: None (occurrence: None)
  Receive Date: 20080430
  Receipt Date: 20080425
  Transmission Date: 20081010
  Serious: Yes (Death)
  Sender: FDA-Public Use
  Company Number: PHEH2008US04063

PATIENT

DRUGS (1)
  1. SANDOSTATIN [Suspect]

REACTIONS (1)
  - DEATH [None]
